FAERS Safety Report 13391735 (Version 1)
Quarter: 2017Q1

REPORT INFORMATION
  Report Type: Spontaneous
  Country: GR (occurrence: GR)
  Receive Date: 20170331
  Receipt Date: 20170331
  Transmission Date: 20170429
  Serious: Yes (Other)
  Sender: FDA-Public Use
  Company Number: GR-VIFOR (INTERNATIONAL) INC.-VIT-2017-03267

PATIENT
  Sex: Male

DRUGS (1)
  1. VELPHORO [Suspect]
     Active Substance: FERRIC OXYHYDROXIDE
     Indication: BLOOD PHOSPHORUS ABNORMAL
     Dosage: 1500 TO 2000 MG (3 TO 4 TABLETS)
     Route: 048

REACTIONS (2)
  - Abdominal pain upper [Unknown]
  - Cholecystectomy [Unknown]
